FAERS Safety Report 9417684 (Version 1)
Quarter: 2013Q3

REPORT INFORMATION
  Report Type: Spontaneous
  Country: CN (occurrence: CN)
  Receive Date: 20130724
  Receipt Date: 20130724
  Transmission Date: 20140515
  Serious: Yes (Hospitalization, Other)
  Sender: FDA-Public Use
  Company Number: CN-PFIZER INC-2013210587

PATIENT
  Age: 74 Year
  Sex: Male

DRUGS (4)
  1. SUNITINIB MALATE [Suspect]
     Indication: INSULINOMA
     Dosage: 25 MG ONCE DAILY FOR 4 WEEKS, FOLLOWED BY 2 WEEKS OFF TREATMENT
     Route: 048
     Dates: start: 20080901, end: 200811
  2. SUNITINIB MALATE [Suspect]
     Dosage: 25 MG ONCE DAILY FOR 4 WEEKS, FOLLOWED BY 2 WEEKS OFF TREATMENT
     Route: 048
  3. SUNITINIB MALATE [Suspect]
     Dosage: 12.5 MG DAILY
     Route: 048
     Dates: start: 20100110
  4. SUNITINIB MALATE [Suspect]
     Dosage: 25 MG DAILY
     Dates: start: 20100324, end: 20110414

REACTIONS (2)
  - Hypoglycaemia [Recovering/Resolving]
  - Loss of consciousness [Recovering/Resolving]
